FAERS Safety Report 18297098 (Version 3)
Quarter: 2020Q4

REPORT INFORMATION
  Report Type: Spontaneous
  Country: US (occurrence: US)
  Receive Date: 20200922
  Receipt Date: 20201023
  Transmission Date: 20210113
  Serious: Yes (Other)
  Sender: FDA-Public Use
  Company Number: US-ALLERGAN-2035945US

PATIENT
  Sex: Male

DRUGS (3)
  1. MORPHINE SULFATE UNK [Suspect]
     Active Substance: MORPHINE SULFATE
     Indication: PAIN
     Dosage: 30 MG, TID
     Route: 048
     Dates: start: 2007, end: 2010
  2. TRAMADOL. [Suspect]
     Active Substance: TRAMADOL
     Indication: PRODUCT USED FOR UNKNOWN INDICATION
  3. FENTANYL. [Suspect]
     Active Substance: FENTANYL
     Indication: PRODUCT USED FOR UNKNOWN INDICATION

REACTIONS (10)
  - Deafness bilateral [Not Recovered/Not Resolved]
  - Drug dependence [Recovered/Resolved]
  - Overdose [Unknown]
  - Antisocial behaviour [Recovered/Resolved]
  - Amnesia [Not Recovered/Not Resolved]
  - Depression [Recovered/Resolved]
  - Tremor [Not Recovered/Not Resolved]
  - Foaming at mouth [Recovered/Resolved]
  - Suicide attempt [Recovered/Resolved]
  - Loss of personal independence in daily activities [Not Recovered/Not Resolved]

NARRATIVE: CASE EVENT DATE: 2008
